FAERS Safety Report 6310677-1 (Version None)
Quarter: 2009Q3

REPORT INFORMATION
  Report Type: 
  Country: None (occurrence: None)
  Receive Date: 20090814
  Receipt Date: 20090807
  Transmission Date: 20100115
  Serious: Yes (Death)
  Sender: FDA-Public Use
  Company Number: US-GILEAD-2009-0022086

PATIENT
  Sex: Male
  Weight: 78.996 kg

DRUGS (10)
  1. LETAIRIS [Suspect]
     Route: 048
  2. DILTIAZEM [Concomitant]
  3. COUMADIN [Concomitant]
  4. SINGULAIR [Concomitant]
  5. FLOMAX [Concomitant]
  6. PROSCAR [Concomitant]
  7. EFFEXOR [Concomitant]
  8. PREDNISONE [Concomitant]
  9. ZYRTEC [Concomitant]
  10. EXCEDRIN [Concomitant]

REACTIONS (1)
  - RESPIRATORY TRACT INFECTION [None]
